FAERS Safety Report 6337142-X (Version None)
Quarter: 2009Q3

REPORT INFORMATION
  Report Type: 
  Country: None (occurrence: None)
  Receive Date: 20090831
  Receipt Date: 20090820
  Transmission Date: 20100115
  Serious: Yes (Other)
  Sender: FDA-Public Use
  Company Number: 2009-03023

PATIENT
  Age: 59 Year
  Sex: Female

DRUGS (5)
  1. VELCADE [Suspect]
     Indication: MULTIPLE MYELOMA
     Dosage: 1.8 MG  INTRAVENOUS, 1.4 MG,   INTRAVENOUS
     Route: 042
     Dates: start: 20090625, end: 20090706
  2. VELCADE [Suspect]
     Indication: MULTIPLE MYELOMA
     Dosage: 1.8 MG  INTRAVENOUS, 1.4 MG,   INTRAVENOUS
     Route: 042
     Dates: start: 20090709, end: 20090730
  3. PLACEBO() [Suspect]
     Indication: MULTIPLE MYELOMA
     Dosage: 250 MG, INTRAVENOUS
     Route: 042
     Dates: start: 20090629, end: 20090727
  4. CLODRONATE DISODIUM (CLODRONATE DISODIUM) [Concomitant]
  5. SULFAMETHOXAZOLE W/TRIMETHOPRIM (SULFAMETHOXAZOLE, TRIMETHOPRIM) [Concomitant]

REACTIONS (1)
  - THROMBOCYTOPENIA [None]
